FAERS Safety Report 9770758 (Version 2)
Quarter: 2014Q1

REPORT INFORMATION
  Report Type: Report from Study
  Country: TW (occurrence: TW)
  Receive Date: 20131218
  Receipt Date: 20140114
  Transmission Date: 20141002
  Serious: Yes (Hospitalization)
  Sender: FDA-Public Use
  Company Number: TW-SHIRE-ALL1-2013-08838

PATIENT
  Age: 5 Year
  Sex: Male

DRUGS (4)
  1. IDURSULFASE [Suspect]
     Indication: MUCOPOLYSACCHARIDOSIS II
     Dosage: UNK UNK, UNKNOWN
     Route: 041
  2. MEQUITAZINE [Concomitant]
     Indication: PREMEDICATION
     Dosage: 25 MG, 2X/DAY:BID
     Route: 048
     Dates: start: 20110909
  3. DEXCHLORPHENIRAMIN                 /00043701/ [Concomitant]
     Indication: PREMEDICATION
     Dosage: 1 MG, 1X/DAY:QD
     Route: 048
     Dates: start: 20110909, end: 20110920
  4. GUAIACOL GLYCERIL [Concomitant]
     Indication: PAIN
     Dosage: 6 ML, 4X/DAY:QID
     Route: 048
     Dates: start: 20110909, end: 20111001

REACTIONS (5)
  - Tonsillar disorder [Recovered/Resolved]
  - Adenoidal disorder [Recovered/Resolved]
  - Hernia [Recovered/Resolved]
  - Laryngeal disorder [Recovered/Resolved]
  - Ear disorder [Recovered/Resolved]
